FAERS Safety Report 7035964-3 (Version None)
Quarter: 2010Q4

REPORT INFORMATION
  Report Type: 
  Country: None (occurrence: None)
  Receive Date: 20101008
  Receipt Date: 20100923
  Transmission Date: 20110411
  Serious: Yes (Other)
  Sender: FDA-Public Use
  Company Number: CA-GENENTECH-307291

PATIENT
  Sex: Male

DRUGS (1)
  1. XOLAIR [Suspect]
     Indication: ASTHMA
     Dosage: 375 MG, 1/MONTH
     Route: 058
     Dates: start: 20060623

REACTIONS (2)
  - ASTHMA [None]
  - NASAL POLYPS [None]
